FAERS Safety Report 16693731 (Version 1)
Quarter: 2019Q3

REPORT INFORMATION
  Report Type: Spontaneous
  Country: US (occurrence: US)
  Receive Date: 20190812
  Receipt Date: 20190812
  Transmission Date: 20191004
  Serious: No
  Sender: FDA-Public Use
  Company Number: US-AMNEAL PHARMACEUTICALS-2019AMN00070

PATIENT
  Sex: Female

DRUGS (12)
  1. DGL [Concomitant]
     Indication: SUPPLEMENTATION THERAPY
     Dosage: 2 DF, 2X/DAY
  2. DIGESTIVE ENZYMES [Concomitant]
     Active Substance: UNSPECIFIED INGREDIENT
     Indication: SUPPLEMENTATION THERAPY
     Dosage: 1 DF, 2X/DAY
  3. VITAMIN D3 [Concomitant]
     Active Substance: CHOLECALCIFEROL
     Indication: SUPPLEMENTATION THERAPY
     Dosage: 2000 IU, 1X/DAY
  4. SPIRONOLACTONE. [Suspect]
     Active Substance: SPIRONOLACTONE
     Indication: PRODUCT USED FOR UNKNOWN INDICATION
     Dosage: UNK UNK, 1X/DAY
     Route: 065
  5. COQ [Concomitant]
     Indication: SUPPLEMENTATION THERAPY
     Dosage: 100 MG, 2X/DAY
  6. ALLEGRA [Concomitant]
     Active Substance: FEXOFENADINE HYDROCHLORIDE
     Indication: PRODUCT USED FOR UNKNOWN INDICATION
     Dosage: 60 MG, 1X/DAY
     Route: 065
  7. PROBIOTIC ACIDOPHILUS [Concomitant]
     Active Substance: LACTOBACILLUS ACIDOPHILUS
     Indication: SUPPLEMENTATION THERAPY
     Dosage: 2 DF, 1X/DAY
  8. ASTRAGALUS ROOT [Concomitant]
     Indication: SUPPLEMENTATION THERAPY
     Dosage: 470 MG, 1X/DAY
  9. OMEGA 3-FISH OIL [Concomitant]
     Indication: SUPPLEMENTATION THERAPY
     Dosage: 2 G, 1X/DAY
  10. HIGH POTENCY MULTI-VITAMIN [Concomitant]
     Indication: SUPPLEMENTATION THERAPY
     Dosage: UNK UNK, 1X/DAY
  11. MAGNESIUM [Concomitant]
     Active Substance: MAGNESIUM
     Indication: SUPPLEMENTATION THERAPY
     Dosage: 250 MG, 1X/DAY
  12. METAMUCIL [Concomitant]
     Active Substance: PLANTAGO SEED
     Indication: SUPPLEMENTATION THERAPY
     Dosage: UNK UNK, 1X/DAY

REACTIONS (2)
  - Skin exfoliation [Unknown]
  - Drug eruption [Recovered/Resolved]
